FAERS Safety Report 8858948 (Version 1)
Quarter: 2012Q4

REPORT INFORMATION
  Report Type: 
  Country: US (occurrence: US)
  Receive Date: 20121024
  Receipt Date: 20121024
  Transmission Date: 20130627
  Serious: Yes (Hospitalization, Other)
  Sender: FDA-Public Use
  Company Number: 2012SP002933

PATIENT
  Sex: Female
  Weight: 63 kg

DRUGS (13)
  1. LATUDA [Suspect]
     Indication: PRODUCT USED FOR UNKNOWN INDICATION
     Route: 048
     Dates: start: 20111115, end: 20111224
  2. XANAX [Concomitant]
     Indication: ANXIETY
  3. ABILIFY [Concomitant]
     Indication: PRODUCT USED FOR UNKNOWN INDICATION
  4. RISPERDAL [Concomitant]
     Indication: PRODUCT USED FOR UNKNOWN INDICATION
  5. GEODON /01487003/ [Concomitant]
     Indication: PRODUCT USED FOR UNKNOWN INDICATION
  6. ZYPREXA [Concomitant]
     Indication: PRODUCT USED FOR UNKNOWN INDICATION
  7. SEROQUEL [Concomitant]
     Indication: PRODUCT USED FOR UNKNOWN INDICATION
  8. HALDOL /00027401/ [Concomitant]
     Indication: PRODUCT USED FOR UNKNOWN INDICATION
  9. KLONOPIN [Concomitant]
     Indication: PRODUCT USED FOR UNKNOWN INDICATION
  10. ATIVAN [Concomitant]
     Indication: PRODUCT USED FOR UNKNOWN INDICATION
  11. SERAX /00301301/ [Concomitant]
     Indication: PRODUCT USED FOR UNKNOWN INDICATION
  12. BENADRYL /00000402/ [Concomitant]
     Indication: PRODUCT USED FOR UNKNOWN INDICATION
  13. ALCOHOL [Concomitant]
     Indication: ALCOHOL USE

REACTIONS (21)
  - Limb injury [Unknown]
  - Paralysis [Unknown]
  - Eye pain [Unknown]
  - Ocular hyperaemia [Unknown]
  - Hyperacusis [Unknown]
  - Ear congestion [Unknown]
  - Ear disorder [Unknown]
  - Skin atrophy [Unknown]
  - Hyperaesthesia [Not Recovered/Not Resolved]
  - Sexual dysfunction [Not Recovered/Not Resolved]
  - Anorgasmia [Unknown]
  - Varicose vein [Not Recovered/Not Resolved]
  - Weight decreased [Not Recovered/Not Resolved]
  - Dry skin [Not Recovered/Not Resolved]
  - Disturbance in attention [Unknown]
  - Muscle twitching [Unknown]
  - Weight increased [Unknown]
  - Back pain [Unknown]
  - Anxiety [Unknown]
  - Tremor [Unknown]
  - Vision blurred [Unknown]
